FAERS Safety Report 7656172-9 (Version None)
Quarter: 2011Q3

REPORT INFORMATION
  Report Type: 
  Country: None (occurrence: None)
  Receive Date: 20110804
  Receipt Date: 20110728
  Transmission Date: 20111222
  Serious: Yes (Other)
  Sender: FDA-Public Use
  Company Number: DK-PFIZER INC-2011172736

PATIENT
  Age: 49 Year
  Sex: Female
  Weight: 58 kg

DRUGS (3)
  1. METHOTREXATE SODIUM [Suspect]
     Dosage: 2.5 MG, DOSAGE WAS ONCE WEEKLY, INCREASED TO 3, INCREASED TO 5 WEEKLY
     Route: 048
     Dates: start: 20101107, end: 20110409
  2. SULFASALAZINE [Suspect]
     Indication: RHEUMATOID ARTHRITIS
     Dosage: 500 MG, INCREASED AS FOLLOWS 1X1 DAILY THE 1ST WEEK AND 2 TABLETS X2 OVER 3 WEEKS
     Route: 048
     Dates: start: 20101107, end: 20110409
  3. PANTOPRAZOLNATRIUMSESQUIHYDRAT [Concomitant]
     Indication: GOUT
     Dates: start: 20101107, end: 20110409

REACTIONS (8)
  - MEMORY IMPAIRMENT [None]
  - ANXIETY [None]
  - DEPRESSION [None]
  - DECREASED APPETITE [None]
  - CHROMATURIA [None]
  - DISTURBANCE IN ATTENTION [None]
  - CHILLS [None]
  - THIRST DECREASED [None]
